FAERS Safety Report 6720461-2 (Version None)
Quarter: 2010Q2

REPORT INFORMATION
  Report Type: 
  Country: None (occurrence: None)
  Receive Date: 20100511
  Receipt Date: 20100302
  Transmission Date: 20101027
  Serious: No
  Sender: FDA-Public Use
  Company Number: US-ALLERGAN-1002734US

PATIENT
  Sex: Male

DRUGS (3)
  1. ACUVAIL [Suspect]
     Indication: DRUG USE FOR UNKNOWN INDICATION
     Dosage: UNK
     Dates: start: 20100217
  2. ZYMAR [Concomitant]
  3. PRED FORTE [Concomitant]

REACTIONS (1)
  - EYE IRRITATION [None]
